FAERS Safety Report 18164380 (Version 2)
Quarter: 2021Q2

REPORT INFORMATION
  Report Type: Spontaneous
  Country: US (occurrence: US)
  Receive Date: 20200818
  Receipt Date: 20210402
  Transmission Date: 20210717
  Serious: Yes (Other)
  Sender: FDA-Public Use
  Company Number: US-ASTRAZENECA-2020SF02241

PATIENT
  Age: 29253 Day
  Sex: Female
  Weight: 62.6 kg

DRUGS (103)
  1. PROTONIX [Suspect]
     Active Substance: PANTOPRAZOLE SODIUM
     Indication: GASTROOESOPHAGEAL REFLUX DISEASE
     Route: 065
     Dates: start: 200104, end: 201906
  2. PROTONIX [Suspect]
     Active Substance: PANTOPRAZOLE SODIUM
     Indication: GASTROOESOPHAGEAL REFLUX DISEASE
     Dosage: GENERIC
     Route: 065
  3. VITAMIN D3 [Concomitant]
     Active Substance: CHOLECALCIFEROL
     Indication: DIALYSIS
  4. PREDNISONE. [Concomitant]
     Active Substance: PREDNISONE
  5. MULTAQ [Concomitant]
     Active Substance: DRONEDARONE
  6. FUROSEMIDE. [Concomitant]
     Active Substance: FUROSEMIDE
  7. ISOSORBIDE MONONITRATE. [Concomitant]
     Active Substance: ISOSORBIDE MONONITRATE
  8. TOBRAMYCIN. [Concomitant]
     Active Substance: TOBRAMYCIN
  9. IMIPENEM [Concomitant]
     Active Substance: IMIPENEM
  10. ALBUTEROL. [Concomitant]
     Active Substance: ALBUTEROL
  11. BACITRACIN. [Concomitant]
     Active Substance: BACITRACIN
  12. PERI?COLACE [Concomitant]
     Active Substance: CASANTHRANOL\DOCUSATE SODIUM
  13. SPIRIVA [Concomitant]
     Active Substance: TIOTROPIUM BROMIDE MONOHYDRATE
  14. MEDROL [Concomitant]
     Active Substance: METHYLPREDNISOLONE
  15. VASOPRESSIN. [Concomitant]
     Active Substance: VASOPRESSIN
  16. SYNTHROID [Concomitant]
     Active Substance: LEVOTHYROXINE SODIUM
  17. NEXIUM [Suspect]
     Active Substance: ESOMEPRAZOLE MAGNESIUM
     Indication: GASTROOESOPHAGEAL REFLUX DISEASE
     Route: 048
     Dates: start: 200104, end: 201906
  18. TRIMETHOPRIM/SULFA [Concomitant]
     Active Substance: SULFAMETHOXAZOLE\TRIMETHOPRIM
  19. METOPROLOL. [Concomitant]
     Active Substance: METOPROLOL
  20. PROPOFOL. [Concomitant]
     Active Substance: PROPOFOL
  21. TRANEXAMIC [Concomitant]
     Active Substance: TRANEXAMIC ACID
  22. BUPIVACAINE. [Concomitant]
     Active Substance: BUPIVACAINE
  23. EPINEPHRINE. [Concomitant]
     Active Substance: EPINEPHRINE
  24. DIAZEPAM. [Concomitant]
     Active Substance: DIAZEPAM
  25. XARELTO [Concomitant]
     Active Substance: RIVAROXABAN
  26. BREO ELLIPTA [Concomitant]
     Active Substance: FLUTICASONE FUROATE\VILANTEROL TRIFENATATE
  27. THROMBIN [Concomitant]
     Active Substance: THROMBIN
  28. BUDESONIDE?FORMOTEROL [Concomitant]
     Active Substance: BUDESONIDE\FORMOTEROL
  29. TYLENOL [Concomitant]
     Active Substance: ACETAMINOPHEN
  30. BENZOCAINE. [Concomitant]
     Active Substance: BENZOCAINE
  31. ETOMIDATE. [Concomitant]
     Active Substance: ETOMIDATE
  32. HYDROCODONE?ACETAMINOPHEN [Concomitant]
     Active Substance: ACETAMINOPHEN\HYDROCODONE
  33. TIZANIDINE. [Concomitant]
     Active Substance: TIZANIDINE
  34. POTASSIUM [Concomitant]
     Active Substance: POTASSIUM
  35. ZYRTEC [Concomitant]
     Active Substance: CETIRIZINE HYDROCHLORIDE
  36. LEVOTHYROXINE. [Concomitant]
     Active Substance: LEVOTHYROXINE
  37. ZANTAC [Concomitant]
     Active Substance: RANITIDINE HYDROCHLORIDE
  38. DILAUDID [Concomitant]
     Active Substance: HYDROMORPHONE HYDROCHLORIDE
  39. VITAMIN K [Concomitant]
     Active Substance: PHYTONADIONE
  40. CLINDAMYCIN. [Concomitant]
     Active Substance: CLINDAMYCIN
  41. SUGAMMADEX [Concomitant]
     Active Substance: SUGAMMADEX
  42. FERROUS SULFATE. [Concomitant]
     Active Substance: FERROUS SULFATE
  43. POLYETHYLENE GLYCOL [Concomitant]
     Active Substance: POLYETHYLENE GLYCOLS
  44. LACTATED RINGERS SOLUTION [Concomitant]
     Active Substance: CALCIUM CHLORIDE\POTASSIUM CHLORIDE\SODIUM CHLORIDE\SODIUM LACTATE
  45. ROCEPHIN [Concomitant]
     Active Substance: CEFTRIAXONE SODIUM
  46. IRON [Concomitant]
     Active Substance: IRON
  47. MIDODRINE [Concomitant]
     Active Substance: MIDODRINE
  48. SODIUM BICARBONATE. [Concomitant]
     Active Substance: SODIUM BICARBONATE
  49. HYDROCORTISONE. [Concomitant]
     Active Substance: HYDROCORTISONE
  50. UNASYN [Concomitant]
     Active Substance: AMPICILLIN SODIUM\SULBACTAM SODIUM
  51. FLUTICASONE. [Concomitant]
     Active Substance: FLUTICASONE
  52. HYDRALAZINE [Concomitant]
     Active Substance: HYDRALAZINE HYDROCHLORIDE
  53. FERRITIN [Concomitant]
     Active Substance: FERRITIN
  54. AMBIEN [Concomitant]
     Active Substance: ZOLPIDEM TARTRATE
  55. OXYCODONE [Concomitant]
     Active Substance: OXYCODONE
  56. DOCUSATE?SENNA [Concomitant]
  57. NEXIUM [Suspect]
     Active Substance: ESOMEPRAZOLE MAGNESIUM
     Indication: GASTROOESOPHAGEAL REFLUX DISEASE
     Route: 048
     Dates: start: 2001, end: 2017
  58. PROTONIX [Suspect]
     Active Substance: PANTOPRAZOLE SODIUM
     Indication: GASTROOESOPHAGEAL REFLUX DISEASE
     Route: 065
     Dates: start: 2001, end: 2019
  59. COENZYME Q10 [Concomitant]
     Active Substance: DIETARY SUPPLEMENT\UBIDECARENONE
  60. SENNA [Concomitant]
     Active Substance: SENNA LEAF\SENNOSIDES\SENNOSIDES A AND B
  61. ADVAIR HFA [Concomitant]
     Active Substance: FLUTICASONE PROPIONATE\SALMETEROL XINAFOATE
  62. ASPIRIN. [Concomitant]
     Active Substance: ASPIRIN
  63. GENTAMICIN. [Concomitant]
     Active Substance: GENTAMICIN
  64. NITROFURANTOIN. [Concomitant]
     Active Substance: NITROFURANTOIN
  65. CEFEPIME [Concomitant]
     Active Substance: CEFEPIME HYDROCHLORIDE
  66. MORPHINE [Concomitant]
     Active Substance: MORPHINE
  67. EPOGEN [Concomitant]
     Active Substance: ERYTHROPOIETIN
  68. ONDANSETRON [Concomitant]
     Active Substance: ONDANSETRON
  69. SOLU?MEDROL [Concomitant]
     Active Substance: METHYLPREDNISOLONE SODIUM SUCCINATE
  70. GABAPENTIN. [Concomitant]
     Active Substance: GABAPENTIN
  71. NEXIUM [Suspect]
     Active Substance: ESOMEPRAZOLE MAGNESIUM
     Indication: GASTROOESOPHAGEAL REFLUX DISEASE
     Dosage: GENERIC
     Route: 065
     Dates: start: 2015
  72. MAGNESIUM OXIDE. [Concomitant]
     Active Substance: MAGNESIUM OXIDE
  73. PRAVASTATIN. [Concomitant]
     Active Substance: PRAVASTATIN
  74. WARFARIN [Concomitant]
     Active Substance: WARFARIN
  75. ALBUTEROL?IPRATROPIUM [Concomitant]
     Active Substance: ALBUTEROL\IPRATROPIUM
  76. ROCURONIUM [Concomitant]
     Active Substance: ROCURONIUM BROMIDE
  77. VENOFER [Concomitant]
     Active Substance: IRON SUCROSE
  78. PENICILLIN G [Concomitant]
     Active Substance: PENICILLIN G
  79. AMPICILLIN [Concomitant]
     Active Substance: AMPICILLIN
  80. LIDOCAINE. [Concomitant]
     Active Substance: LIDOCAINE
  81. DEXAMETHASONE. [Concomitant]
     Active Substance: DEXAMETHASONE
  82. POLYMYXIN B SULFATE. [Concomitant]
     Active Substance: POLYMYXIN B SULFATE
  83. LOVENOX [Concomitant]
     Active Substance: ENOXAPARIN SODIUM
  84. TRELEGY ELLIPTA [Concomitant]
     Active Substance: FLUTICASONE FUROATE\UMECLIDINIUM BROMIDE\VILANTEROL TRIFENATATE
  85. ZOSYN [Concomitant]
     Active Substance: PIPERACILLIN SODIUM\TAZOBACTAM SODIUM
  86. KETAMINE [Concomitant]
     Active Substance: KETAMINE
  87. CLONIDINE. [Concomitant]
     Active Substance: CLONIDINE
  88. PRILOSEC [Suspect]
     Active Substance: OMEPRAZOLE MAGNESIUM
     Indication: GASTROOESOPHAGEAL REFLUX DISEASE
     Route: 048
     Dates: start: 2001, end: 2019
  89. VITAMIN B COMPLEX [Concomitant]
     Active Substance: CYANOCOBALAMIN\DEXPANTHENOL\NIACINAMIDE\PYRIDOXINE HYDROCHLORIDE\RIBOFLAVIN 5^-PHOSPHATE SODIUM\THIAMINE HYDROCHLORIDE\VITAMIN B COMPLEX
     Indication: DIALYSIS
  90. NITROSTAT [Concomitant]
     Active Substance: NITROGLYCERIN
  91. BYSTOLIC [Concomitant]
     Active Substance: NEBIVOLOL HYDROCHLORIDE
  92. MONTELUKAST [Concomitant]
     Active Substance: MONTELUKAST SODIUM
  93. COUMADIN [Concomitant]
     Active Substance: WARFARIN SODIUM
  94. TUMS [Concomitant]
     Active Substance: CALCIUM CARBONATE
  95. PHYTONADIONE. [Concomitant]
     Active Substance: PHYTONADIONE
  96. FENTANYL. [Concomitant]
     Active Substance: FENTANYL
  97. PHENYLEPHRINE [Concomitant]
     Active Substance: PHENYLEPHRINE HYDROCHLORIDE
  98. SODIUM CHLORIDE. [Concomitant]
     Active Substance: SODIUM CHLORIDE
  99. HEPARIN [Concomitant]
     Active Substance: HEPARIN SODIUM
  100. MARCAINE [Concomitant]
     Active Substance: BUPIVACAINE HYDROCHLORIDE
  101. ROSUVASTATIN. [Concomitant]
     Active Substance: ROSUVASTATIN
  102. OXYGEN. [Concomitant]
     Active Substance: OXYGEN
  103. PHENERGAN [Concomitant]
     Active Substance: PROMETHAZINE HYDROCHLORIDE

REACTIONS (7)
  - Renal failure [Unknown]
  - Nephrogenic anaemia [Unknown]
  - Hyperparathyroidism secondary [Unknown]
  - End stage renal disease [Not Recovered/Not Resolved]
  - Gastrooesophageal reflux disease [Not Recovered/Not Resolved]
  - Chronic kidney disease [Not Recovered/Not Resolved]
  - Acute kidney injury [Unknown]

NARRATIVE: CASE EVENT DATE: 20160328
